FAERS Safety Report 25932609 (Version 1)
Quarter: 2025Q4

REPORT INFORMATION
  Report Type: Spontaneous
  Country: BR (occurrence: BR)
  Receive Date: 20251017
  Receipt Date: 20251017
  Transmission Date: 20260119
  Serious: Yes (Death)
  Sender: ROCHE
  Company Number: BR-ROCHE-10000406975

PATIENT
  Age: 60 Year
  Sex: Female

DRUGS (7)
  1. ATEZOLIZUMAB [Suspect]
     Active Substance: ATEZOLIZUMAB
     Indication: Hepatocellular carcinoma
     Route: 065
     Dates: start: 202004
  2. BEVACIZUMAB [Suspect]
     Active Substance: BEVACIZUMAB
     Indication: Hepatocellular carcinoma
     Route: 065
     Dates: start: 202004
  3. SORAFENIB [Concomitant]
     Active Substance: SORAFENIB
     Indication: Hepatocellular carcinoma
     Dates: start: 202106
  4. LENVATINIB [Concomitant]
     Active Substance: LENVATINIB
     Indication: Hepatocellular carcinoma
     Dates: start: 202103
  5. NELVUTAMIG [Concomitant]
     Active Substance: NELVUTAMIG
     Indication: Hepatocellular carcinoma
     Dosage: 3MG/KG - 2 CYCLES
     Dates: start: 202111, end: 202201
  6. NIVOLUMAB [Concomitant]
     Active Substance: NIVOLUMAB
     Indication: Hepatocellular carcinoma
     Dosage: 1MG/KG X2 CYCLES
     Dates: start: 202111, end: 202201
  7. TENOFOVIR [Concomitant]
     Active Substance: TENOFOVIR

REACTIONS (2)
  - Rash [Unknown]
  - Hepatocellular carcinoma [Fatal]

NARRATIVE: CASE EVENT DATE: 20210101
